FAERS Safety Report 8464738-1 (Version None)
Quarter: 2012Q2

REPORT INFORMATION
  Report Type: 
  Country: None (occurrence: None)
  Receive Date: 20120626
  Receipt Date: 20120622
  Transmission Date: 20120825
  Serious: No
  Sender: FDA-Public Use
  Company Number: US-PFIZER INC-2012151058

PATIENT
  Sex: Female
  Weight: 63.492 kg

DRUGS (7)
  1. ALAVERT [Concomitant]
     Indication: HYPERSENSITIVITY
     Dosage: UNK, 1X/DAY
  2. LYRICA [Suspect]
     Indication: NEUROPATHY PERIPHERAL
     Dosage: 50 MG, 2X/DAY
     Route: 048
     Dates: start: 20120618, end: 20120621
  3. GABAPENTIN [Suspect]
     Indication: NEUROPATHY PERIPHERAL
  4. GABAPENTIN [Suspect]
     Indication: NEURALGIA
  5. ZOLOFT [Concomitant]
     Dosage: 50 MG, UNK
  6. ATENOLOL [Concomitant]
     Dosage: UNK
  7. LYRICA [Suspect]
     Indication: NEURALGIA

REACTIONS (3)
  - PRURITUS [None]
  - RASH GENERALISED [None]
  - URTICARIA [None]
